FAERS Safety Report 7607181-7 (Version None)
Quarter: 2011Q3

REPORT INFORMATION
  Report Type: 
  Country: None (occurrence: None)
  Receive Date: 20110713
  Receipt Date: 20110701
  Transmission Date: 20111222
  Serious: Yes (Other)
  Sender: FDA-Public Use
  Company Number: US-BAYER-2010-004372

PATIENT
  Sex: Female
  Weight: 64 kg

DRUGS (10)
  1. YAZ [Suspect]
     Indication: CONTRACEPTION
     Route: 048
     Dates: start: 20080101, end: 20100201
  2. PAXIL [Concomitant]
     Dosage: UNK
  3. MOTRIN [Concomitant]
     Dosage: UNK
     Dates: start: 20090827
  4. TYLENOL-500 [Concomitant]
     Dosage: UNK
     Dates: start: 20090827
  5. CELEXA [Concomitant]
     Indication: ANXIETY
     Dosage: 1 UNK, UNK
  6. YAZ [Suspect]
     Indication: PREMENSTRUAL SYNDROME
  7. YASMIN [Suspect]
     Indication: CONTRACEPTION
     Dates: start: 20070401, end: 20080101
  8. ZOLOFT [Concomitant]
     Dosage: UNK
     Dates: start: 20091109
  9. YASMIN [Suspect]
     Indication: PREMENSTRUAL SYNDROME
  10. ACIPHEX [Concomitant]
     Dosage: 20 MG, UNK
     Dates: start: 20091106

REACTIONS (4)
  - CHOLELITHIASIS [None]
  - GALLBLADDER DISORDER [None]
  - INJURY [None]
  - CHOLECYSTITIS CHRONIC [None]
